FAERS Safety Report 4299446-4 (Version None)
Quarter: 2004Q1

REPORT INFORMATION
  Report Type: 
  Country: None (occurrence: None)
  Receive Date: 20040217
  Receipt Date: 20040203
  Transmission Date: 20041129
  Serious: Yes (Hospitalization)
  Sender: FDA-Public Use
  Company Number: 2004CG00225

PATIENT
  Age: 55 Year
  Sex: Male

DRUGS (11)
  1. TENORMIN [Suspect]
  2. MOPRAL [Suspect]
  3. BI-PROFENID [Suspect]
  4. LAROXYL [Suspect]
  5. FRAXIPARINE [Suspect]
  6. TOPALGIC ^HOECHST^ [Suspect]
  7. STILNOX [Suspect]
  8. MYOLASTAN [Suspect]
  9. STABLON [Suspect]
  10. ELISOR [Suspect]
  11. GINKOR [Suspect]

REACTIONS (1)
  - EOSINOPHILIA [None]
